FAERS Safety Report 15343513 (Version 19)
Quarter: 2022Q4

REPORT INFORMATION
  Report Type: Report from Study
  Country: US (occurrence: US)
  Receive Date: 20180903
  Receipt Date: 20221018
  Transmission Date: 20230112
  Serious: Yes (Hospitalization, Other)
  Sender: FDA-Public Use
  Company Number: US-PFIZER INC-2016524113

PATIENT
  Sex: Female
  Weight: 69.4 kg

DRUGS (5)
  1. LYRICA [Suspect]
     Active Substance: PREGABALIN
     Indication: Neuropathy peripheral
     Dosage: 300 MILLIGRAM, QD(300 MG, 1X/DAY (AT BEDTIME FOR NEUROPATHY FOR 90 DAYS/ AT BEDTIME))
     Route: 048
  2. LYRICA [Suspect]
     Active Substance: PREGABALIN
     Indication: Fibromyalgia
     Dosage: UNK, QD (1X/DAY)
     Route: 065
  3. LYRICA [Suspect]
     Active Substance: PREGABALIN
     Indication: Seizure
     Dosage: 300 MILLIGRAM, QD(300 MG, DAILY (AT BEDTIME))
     Route: 048
  4. LYRICA [Suspect]
     Active Substance: PREGABALIN
     Dosage: UNK
     Route: 065
  5. LYRICA [Suspect]
     Active Substance: PREGABALIN
     Dosage: 300 MILLIGRAM, BID (300 MG, 2X/DAY)
     Route: 048

REACTIONS (19)
  - Withdrawal syndrome [Unknown]
  - Cerebrovascular accident [Recovered/Resolved]
  - Seizure [Unknown]
  - Breast cancer [Unknown]
  - Intentional self-injury [Unknown]
  - Blood pressure abnormal [Unknown]
  - Sleep disorder [Unknown]
  - Formication [Recovered/Resolved]
  - Nervousness [Recovered/Resolved]
  - Illness [Recovered/Resolved]
  - Nausea [Recovered/Resolved]
  - Headache [Recovered/Resolved]
  - Pruritus [Recovered/Resolved]
  - Restlessness [Recovered/Resolved]
  - Paraesthesia [Unknown]
  - Pyrexia [Recovered/Resolved]
  - Chills [Recovered/Resolved]
  - Cough [Unknown]
  - Product use issue [Unknown]

NARRATIVE: CASE EVENT DATE: 20180101
